FAERS Safety Report 8070057 (Version 9)
Quarter: 2014Q2

REPORT INFORMATION
  Report Type: Report from Study
  Country: CA (occurrence: CA)
  Receive Date: 20110804
  Receipt Date: 20140610
  Transmission Date: 20141212
  Serious: Yes (Life-Threatening, Hospitalization)
  Sender: FDA-Public Use
  Company Number: CA-AMGEN-CANCT2011039222

PATIENT
  Age: 50 Year
  Sex: Female
  Weight: 124.5 kg

DRUGS (22)
  1. DENOSUMAB [Suspect]
     Indication: BREAST CANCER
     Dosage: UNK UNK, Q3WK
     Route: 058
     Dates: start: 20110506
  2. CYCLOPHOSPHAMIDE [Concomitant]
     Dosage: 600 MG/M2, Q3WK
     Route: 042
     Dates: start: 20110506
  3. DOCETAXEL [Concomitant]
     Dosage: 75 MG/M2, Q3WK
     Route: 042
     Dates: start: 20110506
  4. TORADOL [Concomitant]
     Dosage: UNK
     Route: 048
     Dates: start: 20110405, end: 20110827
  5. IBUPROFEN [Concomitant]
     Dosage: UNK UNK, PRN
     Route: 048
     Dates: start: 19800101
  6. TYLENOL [Concomitant]
     Dosage: UNK UNK, PRN
     Dates: start: 20110507, end: 20110803
  7. DECADRON [Concomitant]
     Dosage: 8-10 MG, UNK
     Dates: start: 20110505, end: 20110709
  8. MAXERAN [Concomitant]
     Dosage: 10 MG, PRN
     Route: 048
     Dates: start: 20110509, end: 20110712
  9. GAVISCON [Concomitant]
     Dosage: 15 ML, UNK
     Route: 048
     Dates: start: 20110509, end: 20110526
  10. CALCIUM [Concomitant]
     Dosage: 500 MG, BID
     Route: 048
     Dates: start: 20110507
  11. VITAMIN D [Concomitant]
     Dosage: 1000- 2000 IU, QD
     Route: 048
     Dates: start: 20110507
  12. VITAMIN D [Concomitant]
  13. SENOKOT [Concomitant]
     Dosage: UNK UNK, PRN
     Route: 048
     Dates: start: 20110507, end: 20110711
  14. DOCUSATE CALCIUM [Concomitant]
     Dosage: UNK
     Route: 048
     Dates: start: 20110507, end: 20110711
  15. PANTOLOC [Concomitant]
     Dosage: 40 MG, QD
     Route: 048
     Dates: start: 20110527, end: 20110731
  16. CIPROFLOXACIN [Concomitant]
     Dosage: 500 MG, UNK
     Route: 048
     Dates: start: 20110510, end: 20110606
  17. LORATADINE [Concomitant]
     Dosage: 10 MG, UNK
     Route: 048
     Dates: start: 20110617, end: 20110817
  18. ZOFRAN [Concomitant]
     Dosage: 8 MG, UNK
     Dates: start: 20110506, end: 20110710
  19. BENADRYL [Concomitant]
     Dosage: 50 MG, UNK
     Route: 048
     Dates: start: 20110607, end: 20110609
  20. APREPITANT [Concomitant]
     Dosage: 80-125 MG, UNK
     Route: 048
     Dates: start: 20110617, end: 20110710
  21. ZANTAC [Concomitant]
     Dosage: 150 MG, BID
     Route: 048
     Dates: start: 20110509, end: 20110817
  22. OXYCODONE [Concomitant]
     Dosage: 5 MG, PRN
     Route: 048
     Dates: start: 20110530, end: 20110823

REACTIONS (1)
  - Pulmonary embolism [Recovered/Resolved]
